FAERS Safety Report 13670275 (Version 6)
Quarter: 2017Q3

REPORT INFORMATION
  Report Type: Spontaneous
  Country: US (occurrence: US)
  Receive Date: 20170620
  Receipt Date: 20170714
  Transmission Date: 20171127
  Serious: Yes (Hospitalization, Other)
  Sender: FDA-Public Use
  Company Number: US-SA-2017SA107882

PATIENT
  Age: 86 Year
  Sex: Male

DRUGS (25)
  1. LANTUS SOLOSTAR [Suspect]
     Active Substance: INSULIN GLARGINE
     Indication: TYPE 2 DIABETES MELLITUS
     Dosage: DOSE: 26-28 U AM; 20-23 U PM
     Route: 051
     Dates: start: 2015
  2. LANTUS SOLOSTAR [Suspect]
     Active Substance: INSULIN GLARGINE
     Indication: TYPE 2 DIABETES MELLITUS
     Dosage: DOSE: 26-28 U AM; 20-23 U PM
     Route: 051
     Dates: start: 2015
  3. IRON [Concomitant]
     Active Substance: IRON
     Route: 065
  4. METOPROLOL. [Concomitant]
     Active Substance: METOPROLOL
     Route: 065
  5. VANCOMYCIN [Concomitant]
     Active Substance: VANCOMYCIN
     Route: 065
  6. SOLOSTAR [Suspect]
     Active Substance: DEVICE
     Indication: TYPE 2 DIABETES MELLITUS
     Dates: start: 2015
  7. NOVOLOG [Concomitant]
     Active Substance: INSULIN ASPART
     Dosage: WITH MEALS, ?PER SLIDING SCALE
     Route: 065
  8. POTASSIUM [Concomitant]
     Active Substance: POTASSIUM
     Route: 065
  9. LASIX [Concomitant]
     Active Substance: FUROSEMIDE
     Route: 065
  10. DOXYCYCLINE. [Concomitant]
     Active Substance: DOXYCYCLINE
     Route: 065
  11. LANTUS [Suspect]
     Active Substance: INSULIN GLARGINE
     Indication: DIABETES MELLITUS
     Dosage: VIAL SUSPECT
     Route: 051
  12. SENNA [Concomitant]
     Active Substance: SENNA LEAF\SENNOSIDES\SENNOSIDES A AND B
     Route: 065
  13. VITAMIN C [Concomitant]
     Active Substance: ASCORBIC ACID
     Route: 065
  14. MIRTAZAPINE. [Concomitant]
     Active Substance: MIRTAZAPINE
     Route: 065
  15. PRILOSEC [Concomitant]
     Active Substance: OMEPRAZOLE MAGNESIUM
     Route: 065
  16. LACTULOSE. [Concomitant]
     Active Substance: LACTULOSE
     Dosage: TABLE SPOONS
     Route: 048
  17. CELEXA [Concomitant]
     Active Substance: CITALOPRAM HYDROBROMIDE
     Route: 065
  18. PANTHENOL/RETINOL/THIAMINE HYDROCHLORIDE/ASCORBIC ACID/ERGOCALCIFEROL/FOLIC ACID/RIBOFLAVIN/NICOTINA [Concomitant]
     Route: 065
  19. MEGACE [Concomitant]
     Active Substance: MEGESTROL ACETATE
     Route: 065
  20. SOLOSTAR [Suspect]
     Active Substance: DEVICE
     Indication: TYPE 2 DIABETES MELLITUS
     Dates: start: 2015
  21. SPIRONOLACTONE. [Concomitant]
     Active Substance: SPIRONOLACTONE
     Route: 065
  22. DIGOXIN. [Concomitant]
     Active Substance: DIGOXIN
     Route: 065
  23. PRAVASTATIN. [Concomitant]
     Active Substance: PRAVASTATIN
     Route: 065
  24. ZOSYN [Concomitant]
     Active Substance: PIPERACILLIN SODIUM\TAZOBACTAM SODIUM
     Route: 065
  25. LEVAQUIN [Concomitant]
     Active Substance: LEVOFLOXACIN
     Route: 065

REACTIONS (21)
  - Unevaluable event [Unknown]
  - Injection site haemorrhage [Unknown]
  - Dizziness [Unknown]
  - Product use issue [Unknown]
  - Lung neoplasm malignant [Unknown]
  - Carotid artery disease [Unknown]
  - Atrial fibrillation [Unknown]
  - Chronic obstructive pulmonary disease [Unknown]
  - Wrong technique in product usage process [Unknown]
  - Infected skin ulcer [Unknown]
  - Sepsis [Unknown]
  - Hyperglycaemia [Unknown]
  - Blood glucose decreased [Unknown]
  - Device use issue [Unknown]
  - Product use issue [Unknown]
  - Skin ulcer [Unknown]
  - Cardiac disorder [Unknown]
  - Cardiac valve disease [Unknown]
  - Bladder disorder [Unknown]
  - Blood glucose increased [Unknown]
  - Injection site bruising [Unknown]

NARRATIVE: CASE EVENT DATE: 2015
